FAERS Safety Report 5667233-8 (Version None)
Quarter: 2008Q1

REPORT INFORMATION
  Report Type: 
  Country: None (occurrence: None)
  Receive Date: 20080315
  Receipt Date: 20080116
  Transmission Date: 20080703
  Serious: No
  Sender: FDA-Public Use
  Company Number: US-ABBOTT-08P-163-0433723-00

PATIENT
  Sex: Female
  Weight: 39.952 kg

DRUGS (5)
  1. HUMIRA [Suspect]
     Indication: CROHN'S DISEASE
     Route: 058
     Dates: start: 20061101, end: 20070101
  2. HUMIRA [Suspect]
     Route: 058
     Dates: start: 20070401
  3. HUMIRA [Suspect]
     Route: 058
  4. HYOSCYAMINE SULFATE [Concomitant]
     Indication: DRUG USE FOR UNKNOWN INDICATION
  5. ADVIL [Concomitant]
     Indication: DYSMENORRHOEA

REACTIONS (5)
  - CROHN'S DISEASE [None]
  - DRUG INEFFECTIVE [None]
  - INJECTION SITE PAIN [None]
  - PAIN [None]
  - WEIGHT DECREASED [None]
